FAERS Safety Report 9537971 (Version 1)
Quarter: 2013Q3

REPORT INFORMATION
  Report Type: Spontaneous
  Country: GB (occurrence: GB)
  Receive Date: 20130919
  Receipt Date: 20130919
  Transmission Date: 20140515
  Serious: Yes (Hospitalization)
  Sender: FDA-Public Use
  Company Number: GB-WATSON-2013-16327

PATIENT
  Age: 1 Year
  Sex: Male

DRUGS (8)
  1. MYCOPHENOLATE MOFETIL (UNKNOWN) [Suspect]
     Indication: IMMUNOSUPPRESSANT DRUG THERAPY
     Dosage: 140 MG, BID
     Route: 048
     Dates: start: 20130508, end: 20130822
  2. MYCOPHENOLATE MOFETIL (UNKNOWN) [Suspect]
     Dosage: 70 MG, BID
     Route: 048
     Dates: start: 20130823
  3. TACROLIMUS (UNKNOWN) [Suspect]
     Indication: LIVER TRANSPLANT
     Dosage: 0.8 MG, BID
     Route: 048
     Dates: start: 20130508, end: 20130822
  4. TACROLIMUS (UNKNOWN) [Suspect]
     Dosage: 0.4 MG, BID
     Route: 048
     Dates: start: 20130822
  5. PREDNISOLONE [Concomitant]
     Indication: IMMUNOSUPPRESSANT DRUG THERAPY
     Dosage: 1 MG, DAILY
     Route: 048
     Dates: start: 20130512
  6. ASPIRIN [Concomitant]
     Indication: THROMBOSIS PROPHYLAXIS
     Dosage: 18.75 MG, DAILY
     Route: 048
     Dates: start: 20130512
  7. AMLODIPINE [Concomitant]
     Indication: HYPERTENSION
     Dosage: 1 MG, DAILY
     Route: 048
     Dates: start: 20130508
  8. SODIUM CHLORIDE [Concomitant]
     Indication: SUPPLEMENTATION THERAPY
     Dosage: 10 MMOL, BID
     Route: 048
     Dates: start: 20130525

REACTIONS (2)
  - Cholangitis [Recovered/Resolved]
  - Neutropenia [Recovering/Resolving]
